FAERS Safety Report 25811962 (Version 2)
Quarter: 2025Q3

REPORT INFORMATION
  Report Type: Spontaneous
  Country: JP (occurrence: JP)
  Receive Date: 20250917
  Receipt Date: 20250929
  Transmission Date: 20251020
  Serious: Yes (Hospitalization)
  Sender: BOEHRINGER INGELHEIM
  Company Number: JP-NBI-2025-BI-095850

PATIENT
  Age: 89 Year
  Sex: Female

DRUGS (2)
  1. MICARDIS [Suspect]
     Active Substance: TELMISARTAN
     Indication: Pulmonary hypertension
  2. NIFEDIPINE [Concomitant]
     Active Substance: NIFEDIPINE
     Indication: Pulmonary hypertension

REACTIONS (1)
  - Gastrointestinal tract mucosal pigmentation [Unknown]
